FAERS Safety Report 12219848 (Version 2)
Quarter: 2016Q2

REPORT INFORMATION
  Report Type: Spontaneous
  Country: TW (occurrence: TW)
  Receive Date: 20160330
  Receipt Date: 20160505
  Transmission Date: 20160815
  Serious: Yes (Other)
  Sender: FDA-Public Use
  Company Number: TW-UCBSA-2016011093

PATIENT
  Age: 63 Year
  Sex: Female

DRUGS (2)
  1. NEUPRO [Suspect]
     Active Substance: ROTIGOTINE
     Dosage: 8 MG, ONCE DAILY (QD)
     Dates: start: 2015
  2. NEUPRO [Suspect]
     Active Substance: ROTIGOTINE
     Indication: PARKINSON^S DISEASE
     Dosage: 6 MG, ONCE DAILY (QD)
     Dates: start: 2014, end: 2015

REACTIONS (3)
  - Gait disturbance [Unknown]
  - Parosmia [Unknown]
  - Fatigue [Unknown]

NARRATIVE: CASE EVENT DATE: 201512
